FAERS Safety Report 9627856 (Version 2)
Quarter: 2014Q2

REPORT INFORMATION
  Report Type: Spontaneous
  Country: US (occurrence: US)
  Receive Date: 20131016
  Receipt Date: 20140616
  Transmission Date: 20141212
  Serious: No
  Sender: FDA-Public Use
  Company Number: US-LUNDBECK-DKLU1092732

PATIENT
  Age: 46 Year
  Sex: Male
  Weight: 60 kg

DRUGS (8)
  1. SABRIL     (TABLET) [Suspect]
     Indication: CONVULSION
     Route: 048
     Dates: start: 20130524
  2. SABRIL     (TABLET) [Suspect]
     Route: 048
     Dates: start: 20130603
  3. SABRIL     (TABLET) [Suspect]
     Route: 048
     Dates: start: 20130603
  4. SABRIL     (TABLET) [Suspect]
     Route: 048
     Dates: start: 20130610
  5. CLONAZEPAM [Concomitant]
     Indication: PRODUCT USED FOR UNKNOWN INDICATION
  6. DILANTIN [Concomitant]
     Indication: PRODUCT USED FOR UNKNOWN INDICATION
  7. LAMICTAL [Concomitant]
     Indication: PRODUCT USED FOR UNKNOWN INDICATION
  8. PHENOBARBITAL [Concomitant]
     Indication: PRODUCT USED FOR UNKNOWN INDICATION

REACTIONS (2)
  - Erythema [Recovering/Resolving]
  - Oedema peripheral [Recovering/Resolving]
